FAERS Safety Report 4434429-2 (Version None)
Quarter: 2004Q3

REPORT INFORMATION
  Report Type: 
  Country: None (occurrence: None)
  Receive Date: 20040826
  Receipt Date: 20020516
  Transmission Date: 20050211
  Serious: Yes (Death, Hospitalization, Other)
  Sender: FDA-Public Use
  Company Number: US-MERCK-0205USA01985

PATIENT
  Age: 35 Year
  Sex: Male
  Weight: 205 kg

DRUGS (21)
  1. [THERAPY UNSPECIFIED] [Concomitant]
     Indication: DEPRESSION
     Route: 065
     Dates: end: 20011020
  2. TYLENOL [Concomitant]
     Route: 065
  3. VENTOLIN [Concomitant]
     Route: 065
  4. MYLANTA + MYLANTA DS [Concomitant]
     Route: 065
  5. CELEBREX [Concomitant]
     Route: 065
  6. CATAPRES [Concomitant]
     Route: 065
     Dates: end: 20011020
  7. PEPCID [Concomitant]
     Route: 048
  8. DYAZIDE [Concomitant]
     Route: 065
     Dates: end: 20011020
  9. MOTRIN [Concomitant]
     Route: 065
  10. ORUDIS [Concomitant]
     Route: 065
  11. ZESTRIL [Concomitant]
     Indication: HYPERTENSION
     Route: 065
  12. ZESTRIL [Concomitant]
     Indication: CARDIOMEGALY
     Route: 065
  13. CYTOTEC [Concomitant]
     Route: 065
  14. NAPROXEN [Concomitant]
     Route: 065
  15. PROCARDIA [Concomitant]
     Route: 065
     Dates: end: 20011020
  16. XENICAL [Concomitant]
     Indication: OBESITY
     Route: 065
  17. ACTIFED [Concomitant]
     Route: 065
  18. VIOXX [Suspect]
     Indication: ARTHRITIS
     Route: 048
     Dates: end: 20011020
  19. VIOXX [Suspect]
     Route: 048
     Dates: start: 20010103
  20. MERIDIA [Concomitant]
     Indication: OBESITY
     Route: 065
  21. AZMACORT [Concomitant]
     Route: 065

REACTIONS (8)
  - ABDOMINAL PAIN UPPER [None]
  - CHEST PAIN [None]
  - DEATH [None]
  - DYSPNOEA [None]
  - EPIGASTRIC DISCOMFORT [None]
  - MYOCARDIAL INFARCTION [None]
  - STOMACH DISCOMFORT [None]
  - VOMITING [None]
